FAERS Safety Report 7799544-4 (Version None)
Quarter: 2011Q4

REPORT INFORMATION
  Report Type: 
  Country: None (occurrence: None)
  Receive Date: 20111006
  Receipt Date: 20111006
  Transmission Date: 20120403
  Serious: Yes (Life-Threatening, Hospitalization, Disabling, Other)
  Sender: FDA-Public Use
  Company Number: None

PATIENT
  Age: 59 Year
  Sex: Male
  Weight: 70.306 kg

DRUGS (2)
  1. TELAPRAVIR [Concomitant]
     Indication: HEPATITIS C
     Dosage: 200 MG
     Route: 048
     Dates: start: 20110806, end: 20110930
  2. PEGASYS [Suspect]
     Indication: HEPATITIS C
     Dosage: 180 MG
     Route: 023
     Dates: start: 20110806, end: 20110924

REACTIONS (9)
  - COUGH [None]
  - PNEUMONITIS [None]
  - HEPATIC FAILURE [None]
  - RENAL DISORDER [None]
  - GAIT DISTURBANCE [None]
  - PNEUMONIA [None]
  - LUNG DISORDER [None]
  - MULTI-ORGAN DISORDER [None]
  - ATRIAL FIBRILLATION [None]
